FAERS Safety Report 5608122-4 (Version None)
Quarter: 2008Q1

REPORT INFORMATION
  Report Type: 
  Country: None (occurrence: None)
  Receive Date: 20080130
  Receipt Date: 20080118
  Transmission Date: 20080703
  Serious: Yes (Hospitalization)
  Sender: FDA-Public Use
  Company Number: US-ELI_LILLY_AND_COMPANY-US200801003934

PATIENT
  Sex: Female

DRUGS (8)
  1. BYETTA [Suspect]
     Dosage: 10 UG, DAILY (1/D)
     Route: 058
     Dates: start: 20071201
  2. BYETTA [Suspect]
     Dosage: 15 UG, EACH MORNING
     Route: 058
     Dates: end: 20080101
  3. BYETTA [Suspect]
     Dosage: 10 UG, EACH EVENING
     Route: 058
     Dates: end: 20080101
  4. BYETTA [Suspect]
     Dosage: 20 UG, EACH MORNING
     Route: 058
     Dates: start: 20080117
  5. BYETTA [Suspect]
     Dosage: 15 UG, EACH EVENING
     Route: 058
     Dates: start: 20080117
  6. STARLIX [Concomitant]
     Indication: DIABETES MELLITUS
     Dosage: UNK, UNKNOWN
     Route: 048
  7. ACTOS [Concomitant]
     Indication: DIABETES MELLITUS
     Dosage: UNK, UNKNOWN
     Route: 048
  8. GLUCOVANCE [Concomitant]
     Indication: DIABETES MELLITUS
     Dosage: UNK, UNKNOWN
     Route: 048

REACTIONS (4)
  - BLOOD GLUCOSE INCREASED [None]
  - CHEST DISCOMFORT [None]
  - HEADACHE [None]
  - NAUSEA [None]
